FAERS Safety Report 14940384 (Version 2)
Quarter: 2018Q3

REPORT INFORMATION
  Report Type: Spontaneous
  Country: CA (occurrence: CA)
  Receive Date: 20180525
  Receipt Date: 20180816
  Transmission Date: 20181010
  Serious: Yes (Hospitalization)
  Sender: FDA-Public Use
  Company Number: CA-PFIZER INC-2018184037

PATIENT
  Age: 67 Year
  Sex: Male

DRUGS (2)
  1. PLAQUENIL [Concomitant]
     Active Substance: HYDROXYCHLOROQUINE SULFATE
     Dosage: 200 MG, 2X/DAY
     Route: 048
  2. METHOTREXATE SODIUM. [Suspect]
     Active Substance: METHOTREXATE SODIUM
     Dosage: 25 MG, DAILY
     Route: 065
     Dates: start: 2017, end: 2017

REACTIONS (4)
  - Pulmonary toxicity [Unknown]
  - Lung infection [Unknown]
  - Weight decreased [Unknown]
  - Incorrect dose administered [Unknown]
